FAERS Safety Report 7206894-9 (Version None)
Quarter: 2010Q4

REPORT INFORMATION
  Report Type: 
  Country: None (occurrence: None)
  Receive Date: 20101230
  Receipt Date: 20101230
  Transmission Date: 20110411
  Serious: No
  Sender: FDA-Public Use
  Company Number: None

PATIENT
  Sex: Female

DRUGS (1)
  1. XOLAIR [Suspect]
     Dosage: 150 MG SC
     Route: 058
     Dates: start: 20101117

REACTIONS (4)
  - CONDITION AGGRAVATED [None]
  - ECZEMA [None]
  - EYE SWELLING [None]
  - OCULAR HYPERAEMIA [None]
